FAERS Safety Report 9694904 (Version 2)
Quarter: 2014Q1

REPORT INFORMATION
  Report Type: Spontaneous
  Country: US (occurrence: US)
  Receive Date: 20131119
  Receipt Date: 20140212
  Transmission Date: 20141002
  Serious: No
  Sender: FDA-Public Use
  Company Number: US-PFIZER INC-2013327207

PATIENT
  Age: 63 Year
  Sex: Female
  Weight: 58 kg

DRUGS (12)
  1. PREMARIN [Suspect]
     Indication: VULVOVAGINAL DRYNESS
     Dosage: 0.5 G, 1X/DAY
     Route: 067
  2. PREMARIN [Suspect]
     Dosage: 0.25 MG, 2X/WEEK
     Route: 067
  3. PREMARIN [Suspect]
     Dosage: 0.5 G, ONCE EVERY THIRD DAY
     Route: 067
  4. PREMARIN [Suspect]
     Dosage: 1 FULL APPLICATOR, 1X/DAY (AT BEDTIME)
  5. PREMARIN [Interacting]
     Indication: VULVOVAGINAL DRYNESS
     Dosage: 0.3 MG, UNK
     Route: 048
     Dates: end: 2013
  6. NEXIUM [Concomitant]
     Indication: ABDOMINAL DISCOMFORT
     Dosage: UNK
  7. CRESTOR [Concomitant]
     Dosage: UNK
  8. ANTIVERT [Concomitant]
     Indication: DIZZINESS
     Dosage: UNK
  9. MEDROL [Concomitant]
     Dosage: UNK
  10. BELLADONNA ALKALOIDS [Concomitant]
     Indication: ABDOMINAL DISCOMFORT
     Dosage: UNK
  11. BELLADONNA ALKALOIDS [Concomitant]
     Indication: INTESTINAL HAEMORRHAGE
  12. VALIUM [Concomitant]
     Dosage: UNK

REACTIONS (8)
  - Drug interaction [Unknown]
  - Muscle spasms [Recovered/Resolved]
  - Vulvovaginal discomfort [Recovered/Resolved]
  - Condition aggravated [Recovered/Resolved]
  - Drug intolerance [Unknown]
  - Immune system disorder [Unknown]
  - Herpes virus infection [Unknown]
  - Abdominal distension [Unknown]
